FAERS Safety Report 9276021 (Version 1)
Quarter: 2012Q4

REPORT INFORMATION
  Report Type: Spontaneous
  Country: US (occurrence: None)
  Receive Date: 20121109
  Receipt Date: 20121109
  Transmission Date: 20130627
  Serious: Yes (Other)
  Sender: FDA-Public Use
  Company Number: 2012S1000174

PATIENT
  Age: 58 Year
  Sex: Male

DRUGS (5)
  1. CUBICIN [Suspect]
     Indication: ENDOCARDITIS STAPHYLOCOCCAL
  2. RIFAMPIN [Suspect]
  3. BACTRIM DS [Concomitant]
  4. VANCOMYCIN [Concomitant]
  5. AZTREONAM [Concomitant]

REACTIONS (2)
  - Aortic valve incompetence [None]
  - Mitral valve incompetence [None]
